FAERS Safety Report 15291925 (Version 1)
Quarter: 2018Q3

REPORT INFORMATION
  Report Type: Report from Study
  Country: None (occurrence: GB)
  Receive Date: 20180817
  Receipt Date: 20180817
  Transmission Date: 20181010
  Serious: Yes (Hospitalization)
  Sender: FDA-Public Use
  Company Number: GB-ABBVIE-18K-167-2433794-00

PATIENT
  Age: 71 Year
  Sex: Male

DRUGS (1)
  1. DUODOPA [Suspect]
     Active Substance: CARBIDOPA\LEVODOPA
     Indication: PARKINSON^S DISEASE
     Dosage: 1 CASSETTE DAILY
     Route: 050

REACTIONS (10)
  - Urinary tract disorder [Unknown]
  - Hypokinesia [Unknown]
  - Cystitis [Unknown]
  - Testicular pain [Unknown]
  - Stoma site infection [Not Recovered/Not Resolved]
  - Orchitis [Unknown]
  - Dysuria [Unknown]
  - General physical health deterioration [Unknown]
  - Mobility decreased [Unknown]
  - Malaise [Unknown]

NARRATIVE: CASE EVENT DATE: 2018
